FAERS Safety Report 18895178 (Version 1)
Quarter: 2021Q1

REPORT INFORMATION
  Report Type: Spontaneous
  Country: CL (occurrence: CL)
  Receive Date: 20210216
  Receipt Date: 20210216
  Transmission Date: 20210420
  Serious: No
  Sender: FDA-Public Use
  Company Number: CL-LUPIN PHARMACEUTICALS INC.-2021-01629

PATIENT
  Age: 17 Year
  Sex: Female

DRUGS (8)
  1. CALCIUM [Suspect]
     Active Substance: CALCIUM
     Indication: SUPPLEMENTATION THERAPY
     Dosage: 1000 MILLIGRAM, QD
     Route: 065
  2. IRON [Suspect]
     Active Substance: IRON
     Indication: SUPPLEMENTATION THERAPY
     Dosage: UNK (20?60 MG/DAY)
     Route: 065
  3. NITISINONE [Suspect]
     Active Substance: NITISINONE
     Dosage: 0.73 MILLIGRAM/KILOGRAM, QD (AT 34 WEEKS OF GESTATION)
     Route: 065
  4. NITISINONE [Suspect]
     Active Substance: NITISINONE
     Indication: TYROSINAEMIA
     Dosage: UNK (DOSE RANGING 0.7?0.8 MG/KG/DAY (DOSING RANGE DURING PREGNANCY))
     Route: 065
  5. NITISINONE [Suspect]
     Active Substance: NITISINONE
     Dosage: 0.77 MILLIGRAM/KILOGRAM, QD (AT 5 WEEKS OF GESTATION)
     Route: 065
  6. FOLIC ACID. [Suspect]
     Active Substance: FOLIC ACID
     Indication: SUPPLEMENTATION THERAPY
     Dosage: 5 MILLIGRAM, QD
     Route: 065
  7. NITISINONE [Suspect]
     Active Substance: NITISINONE
     Dosage: 0.75 MILLIGRAM/KILOGRAM, QD (AT 20 WEEKS OF GESTATION)
     Route: 065
  8. ZINC. [Suspect]
     Active Substance: ZINC
     Indication: SUPPLEMENTATION THERAPY
     Dosage: 20 MILLIGRAM, QD
     Route: 065

REACTIONS (2)
  - Normal newborn [Unknown]
  - Maternal exposure during pregnancy [Unknown]
